FAERS Safety Report 13119022 (Version 1)
Quarter: 2017Q1

REPORT INFORMATION
  Report Type: Other
  Country: US (occurrence: US)
  Receive Date: 20170116
  Receipt Date: 20170116
  Transmission Date: 20170428
  Serious: Yes (Death)
  Sender: FDA-Public Use
  Company Number: US-OSMOTICA_PHARMACEUTICAL_US_LLC-POI0573201700001

PATIENT
  Age: 88 Year
  Sex: Female

DRUGS (5)
  1. OXYBUTYNIN CHLORIDE. [Suspect]
     Active Substance: OXYBUTYNIN CHLORIDE
     Dates: end: 2015
  2. VERAPAMIL [Suspect]
     Active Substance: VERAPAMIL HYDROCHLORIDE
     Dates: end: 2015
  3. MEMANTINE. [Suspect]
     Active Substance: MEMANTINE
     Dates: end: 2015
  4. ESOMEPRAZOLE [Suspect]
     Active Substance: ESOMEPRAZOLE
     Dates: end: 2015
  5. ROSUVASTATIN. [Suspect]
     Active Substance: ROSUVASTATIN
     Dates: end: 2015

REACTIONS (1)
  - Medication error [Fatal]

NARRATIVE: CASE EVENT DATE: 2015
